FAERS Safety Report 25849288 (Version 1)
Quarter: 2025Q3

REPORT INFORMATION
  Report Type: Spontaneous
  Country: EU (occurrence: EU)
  Receive Date: 20250925
  Receipt Date: 20250925
  Transmission Date: 20251021
  Serious: Yes (Other)
  Sender: JOHNSON AND JOHNSON
  Company Number: EU-VIIV HEALTHCARE ULC-EE2025EME118519

PATIENT
  Age: 62 Year
  Sex: Male

DRUGS (2)
  1. RILPIVIRINE [Suspect]
     Active Substance: RILPIVIRINE
     Indication: HIV infection
     Route: 030
  2. KIVEXA [Suspect]
     Active Substance: ABACAVIR SULFATE\LAMIVUDINE
     Indication: HIV infection
     Dosage: UNK, QD, 600/300MG
     Dates: start: 201710, end: 20190301

REACTIONS (1)
  - B-cell lymphoma [Recovered/Resolved]

NARRATIVE: CASE EVENT DATE: 20180201
